FAERS Safety Report 7058105-5 (Version None)
Quarter: 2010Q4

REPORT INFORMATION
  Report Type: 
  Country: None (occurrence: None)
  Receive Date: 20101022
  Receipt Date: 20101014
  Transmission Date: 20110411
  Serious: Yes (Other)
  Sender: FDA-Public Use
  Company Number: US-JNJFOC-20101004408

PATIENT
  Sex: Female

DRUGS (2)
  1. NUCYNTA [Suspect]
     Indication: PAIN
     Dosage: 3 TIMES DAILY
     Route: 048
     Dates: start: 20100801, end: 20101001
  2. FENTANYL-75 [Concomitant]
     Indication: PRODUCT USED FOR UNKNOWN INDICATION
     Route: 062

REACTIONS (2)
  - ANGIOEDEMA [None]
  - HYPERSENSITIVITY [None]
